FAERS Safety Report 14990383 (Version 1)
Quarter: 2018Q2

REPORT INFORMATION
  Report Type: Spontaneous
  Country: US (occurrence: US)
  Receive Date: 20180608
  Receipt Date: 20180608
  Transmission Date: 20180711
  Serious: No
  Sender: FDA-Public Use
  Company Number: US-ROCHE-2102777

PATIENT
  Sex: Female

DRUGS (21)
  1. FOLIC ACID. [Concomitant]
     Active Substance: FOLIC ACID
  2. LEVOCETIRIZINE DIHYDROCHLORIDE. [Concomitant]
     Active Substance: LEVOCETIRIZINE DIHYDROCHLORIDE
  3. CETIRIZINE HCL [Concomitant]
     Active Substance: CETIRIZINE HYDROCHLORIDE
  4. METHYLPRED [Concomitant]
     Active Substance: METHYLPREDNISOLONE
     Route: 065
  5. PROMETHAZINE WITH CODEINE [Concomitant]
     Active Substance: CODEINE PHOSPHATE\PROMETHAZINE HYDROCHLORIDE
  6. VENTOLIN HFA [Concomitant]
     Active Substance: ALBUTEROL SULFATE
  7. METHOTREXATE. [Concomitant]
     Active Substance: METHOTREXATE
  8. HYDROXYCHLOROQUINE SULFATE. [Concomitant]
     Active Substance: HYDROXYCHLOROQUINE SULFATE
  9. TRIAMCINOLONE ACETONIDE. [Concomitant]
     Active Substance: TRIAMCINOLONE ACETONIDE
  10. AMLODIPINE BESYLATE. [Concomitant]
     Active Substance: AMLODIPINE BESYLATE
  11. SYNTHROID [Concomitant]
     Active Substance: LEVOTHYROXINE SODIUM
  12. DESOXIMETASONE. [Concomitant]
     Active Substance: DESOXIMETASONE
  13. DESONIDE. [Concomitant]
     Active Substance: DESONIDE
  14. ACTEMRA [Suspect]
     Active Substance: TOCILIZUMAB
     Indication: RHEUMATOID ARTHRITIS
     Route: 058
  15. ISONIAZID. [Concomitant]
     Active Substance: ISONIAZID
  16. AZITHROMYCIN ANHYDROUS. [Concomitant]
     Active Substance: AZITHROMYCIN ANHYDROUS
  17. LISINOPRIL. [Concomitant]
     Active Substance: LISINOPRIL
  18. CLOBETASOL PROPIONATE. [Concomitant]
     Active Substance: CLOBETASOL PROPIONATE
  19. IBUPROFEN. [Concomitant]
     Active Substance: IBUPROFEN
  20. ALBUTEROL SULFATE. [Concomitant]
     Active Substance: ALBUTEROL SULFATE
  21. PROTOPIC [Concomitant]
     Active Substance: TACROLIMUS

REACTIONS (1)
  - Myalgia [Not Recovered/Not Resolved]
